FAERS Safety Report 12627530 (Version 5)
Quarter: 2016Q4

REPORT INFORMATION
  Report Type: Report from Study
  Country: None (occurrence: US)
  Receive Date: 20160805
  Receipt Date: 20161005
  Transmission Date: 20170207
  Serious: Yes (Other)
  Sender: FDA-Public Use
  Company Number: US-ABBVIE-16P-163-1693458-00

PATIENT
  Age: 77 Year
  Sex: Male
  Weight: 86.3 kg

DRUGS (3)
  1. LUPRON DEPOT [Suspect]
     Active Substance: LEUPROLIDE ACETATE
     Indication: PROSTATE CANCER
     Route: 030
     Dates: start: 20160513, end: 20160817
  2. TAK-700 [Concomitant]
     Active Substance: ORTERONEL
     Dosage: 200 MG, BID
     Route: 048
     Dates: start: 20160815, end: 20160824
  3. TAK-700 [Concomitant]
     Active Substance: ORTERONEL
     Indication: PROSTATE CANCER
     Dosage: 300 MG, BID
     Route: 048
     Dates: start: 20160513, end: 20160626

REACTIONS (3)
  - Lipase increased [Recovered/Resolved]
  - Lipase increased [Recovering/Resolving]
  - Alanine aminotransferase increased [Recovered/Resolved]

NARRATIVE: CASE EVENT DATE: 20160714
